FAERS Safety Report 9435780 (Version 1)
Quarter: 2013Q3

REPORT INFORMATION
  Report Type: Spontaneous
  Country: US (occurrence: US)
  Receive Date: 20130801
  Receipt Date: 20130801
  Transmission Date: 20140515
  Serious: Yes (Life-Threatening, Hospitalization)
  Sender: FDA-Public Use
  Company Number: US-ASTRAZENECA-2013SE57868

PATIENT
  Age: 63 Year
  Sex: Female

DRUGS (1)
  1. QUETIAPINE XR [Suspect]
     Route: 048
     Dates: start: 2007

REACTIONS (4)
  - Suicide attempt [Unknown]
  - Dysstasia [Unknown]
  - Asthenia [Unknown]
  - Dyspnoea [Unknown]
